FAERS Safety Report 4775126-3 (Version None)
Quarter: 2005Q3

REPORT INFORMATION
  Report Type: 
  Country: None (occurrence: None)
  Receive Date: 20050920
  Receipt Date: 20050908
  Transmission Date: 20060218
  Serious: Yes (Other)
  Sender: FDA-Public Use
  Company Number: 2005090393

PATIENT
  Age: 59 Year
  Sex: Male

DRUGS (2)
  1. LIPITOR [Suspect]
     Indication: HYPERLIPIDAEMIA
     Dosage: UNKNOWN (10 MG, UNKNOWN), ORAL
     Route: 048
     Dates: start: 20050314, end: 20050418
  2. LEVITRA [Concomitant]

REACTIONS (7)
  - ASTHENIA [None]
  - CONDITION AGGRAVATED [None]
  - MYALGIA [None]
  - NEOPLASM [None]
  - PAIN IN EXTREMITY [None]
  - SHOULDER PAIN [None]
  - TREATMENT NONCOMPLIANCE [None]
